FAERS Safety Report 6324106-5 (Version None)
Quarter: 2009Q3

REPORT INFORMATION
  Report Type: 
  Country: None (occurrence: None)
  Receive Date: 20090820
  Receipt Date: 20090811
  Transmission Date: 20100115
  Serious: Yes (Other)
  Sender: FDA-Public Use
  Company Number: AUR-APU-2009-00420

PATIENT
  Sex: Male
  Weight: 3.82 kg

DRUGS (3)
  1. STAVUDINE [Suspect]
     Indication: HIV INFECTION
     Dosage: 60 MG, DAILY, TRANSPLACENT
     Route: 064
     Dates: start: 20080201
  2. LAMIVUDINE [Suspect]
     Indication: HIV INFECTION
     Dosage: 300MG DAILY, TRANSPLACEN
     Route: 064
     Dates: start: 20080201
  3. EFAVIRENZ [Suspect]
     Indication: HIV INFECTION
     Dosage: 600 MG DAILY; TRANSPLACENTALLY
     Route: 064
     Dates: start: 20080201

REACTIONS (6)
  - BRACHIAL PLEXUS INJURY [None]
  - ERB'S PALSY [None]
  - LARGE FOR DATES BABY [None]
  - MATERNAL DRUGS AFFECTING FOETUS [None]
  - PARALYSIS FLACCID [None]
  - VACUUM EXTRACTOR DELIVERY [None]
